FAERS Safety Report 18650197 (Version 1)
Quarter: 2020Q4

REPORT INFORMATION
  Report Type: Spontaneous
  Country: KR (occurrence: KR)
  Receive Date: 20201222
  Receipt Date: 20201222
  Transmission Date: 20210114
  Serious: Yes (Hospitalization)
  Sender: FDA-Public Use
  Company Number: KR-CELGENEUS-KOR-20201205543

PATIENT
  Age: 54 Year
  Sex: Male

DRUGS (1)
  1. AZACITIDINE. [Suspect]
     Active Substance: AZACITIDINE
     Indication: PRODUCT USED FOR UNKNOWN INDICATION
     Route: 058
     Dates: start: 20071101, end: 20080510

REACTIONS (2)
  - Myelodysplastic syndrome [Unknown]
  - Ejaculation delayed [Unknown]

NARRATIVE: CASE EVENT DATE: 20071101
